FAERS Safety Report 8138582-9 (Version None)
Quarter: 2012Q1

REPORT INFORMATION
  Report Type: 
  Country: None (occurrence: None)
  Receive Date: 20120215
  Receipt Date: 20120201
  Transmission Date: 20120608
  Serious: Yes (Other)
  Sender: FDA-Public Use
  Company Number: JP-ROCHE-1037145

PATIENT
  Age: 66 Year
  Sex: Male

DRUGS (2)
  1. OXALIPLATIN [Concomitant]
     Indication: RECTAL CANCER
     Dosage: UNCERTAIN DOSAGE AND ONE COOL
     Route: 041
  2. XELODA [Suspect]
     Indication: RECTAL CANCER
     Dosage: UNCERTAIN DOSAGE AND ONE COOL
     Route: 048

REACTIONS (2)
  - WOUND DEHISCENCE [None]
  - WOUND INFECTION [None]
